FAERS Safety Report 5046363-8 (Version None)
Quarter: 2006Q3

REPORT INFORMATION
  Report Type: 
  Country: None (occurrence: None)
  Receive Date: 20060706
  Receipt Date: 20060706
  Transmission Date: 20061208
  Serious: Yes (Life-Threatening, Hospitalization)
  Sender: FDA-Public Use
  Company Number: None

PATIENT
  Age: 85 Year
  Sex: Male
  Weight: 65 kg

DRUGS (4)
  1. WARFARIN SODIUM [Suspect]
     Indication: ATRIAL FIBRILLATION
     Dosage: WARFARIN DOSE CHANGED EACH DAY
     Route: 048
     Dates: start: 20060628, end: 20060704
  2. WARFARIN SODIUM [Suspect]
     Indication: CEREBROVASCULAR ACCIDENT PROPHYLAXIS
     Dosage: WARFARIN DOSE CHANGED EACH DAY
     Route: 048
     Dates: start: 20060628, end: 20060704
  3. HEPARIN [Suspect]
     Indication: ATRIAL FIBRILLATION
     Dosage: 650 UNITA/HR SINCE 6/29 IV DRIP
     Route: 041
     Dates: start: 20060629, end: 20060703
  4. HEPARIN [Suspect]
     Indication: CEREBROVASCULAR ACCIDENT PROPHYLAXIS
     Dosage: 650 UNITA/HR SINCE 6/29 IV DRIP
     Route: 041
     Dates: start: 20060629, end: 20060703

REACTIONS (7)
  - APHASIA [None]
  - ASTHENIA [None]
  - BLOOD PRESSURE INCREASED [None]
  - DEPRESSED LEVEL OF CONSCIOUSNESS [None]
  - HAEMORRHAGE INTRACRANIAL [None]
  - HYPOTONIA [None]
  - INTRACRANIAL HAEMATOMA [None]
